FAERS Safety Report 15575923 (Version 1)
Quarter: 2018Q4

REPORT INFORMATION
  Report Type: Spontaneous
  Country: US (occurrence: US)
  Receive Date: 20181101
  Receipt Date: 20181101
  Transmission Date: 20190205
  Serious: Yes (Other)
  Sender: FDA-Public Use
  Company Number: US-ASTRAZENECA-2018SF42271

PATIENT
  Sex: Male

DRUGS (1)
  1. FASENRA [Suspect]
     Active Substance: BENRALIZUMAB
     Indication: ASTHMA
     Dosage: UNKNOWN
     Route: 058

REACTIONS (5)
  - Cerebrovascular accident [Unknown]
  - Dermatitis atopic [Unknown]
  - Eye inflammation [Unknown]
  - Peripheral swelling [Unknown]
  - Dermatitis [Unknown]
